FAERS Safety Report 14249736 (Version 1)
Quarter: 2017Q4

REPORT INFORMATION
  Report Type: Spontaneous
  Country: US (occurrence: US)
  Receive Date: 20171204
  Receipt Date: 20171204
  Transmission Date: 20180321
  Serious: Yes (Disabling)
  Sender: FDA-Public Use
  Company Number: None

PATIENT
  Age: 30 Year
  Sex: Male
  Weight: 135 kg

DRUGS (9)
  1. MULTIVITAMIN / MINERAL [Concomitant]
  2. DIPHENHYDRAMINE. [Concomitant]
     Active Substance: DIPHENHYDRAMINE
  3. GABAPENTIN. [Concomitant]
     Active Substance: GABAPENTIN
  4. L-TRYPTOPHAN [Concomitant]
     Active Substance: TRYPTOPHAN
  5. MIRTAZAPINE 15 MG [Suspect]
     Active Substance: MIRTAZAPINE
     Indication: INSOMNIA
     Dosage: ?          QUANTITY:1 TABLET(S);?
     Route: 048
     Dates: start: 20171128, end: 20171203
  6. TINZANIDINE [Concomitant]
  7. MELATONIN [Concomitant]
     Active Substance: MELATONIN
  8. CLONAZEPAM. [Concomitant]
     Active Substance: CLONAZEPAM
  9. DULOXITENE [Concomitant]
     Active Substance: DULOXETINE

REACTIONS (4)
  - Drug ineffective [None]
  - Therapy cessation [None]
  - Back pain [None]
  - Pain [None]

NARRATIVE: CASE EVENT DATE: 20171129
